FAERS Safety Report 18283503 (Version 5)
Quarter: 2020Q4

REPORT INFORMATION
  Report Type: Spontaneous
  Country: JP (occurrence: JP)
  Receive Date: 20200918
  Receipt Date: 20201014
  Transmission Date: 20210113
  Serious: Yes (Death, Other)
  Sender: FDA-Public Use
  Company Number: JP-PFIZER INC-2020359270

PATIENT
  Age: 49 Year
  Sex: Female
  Weight: 60 kg

DRUGS (12)
  1. EPIRUBICIN HYDROCHLORIDE. [Concomitant]
     Active Substance: EPIRUBICIN HYDROCHLORIDE
     Indication: LUNG CANCER METASTATIC
     Dosage: 50 MG, DAILY
     Route: 041
     Dates: start: 199603
  2. ZOTEPINE [Concomitant]
     Active Substance: ZOTEPINE
     Indication: SCHIZOPHRENIA
     Dosage: 30 MG, DAILY
     Route: 048
  3. DOXIFLURIDINE [Concomitant]
     Active Substance: DOXIFLURIDINE
     Indication: LUNG CANCER METASTATIC
     Dosage: 600 MG, DAILY
     Route: 048
     Dates: start: 199603
  4. BIPERIDEN HYDROCHLORIDE [Concomitant]
     Active Substance: BIPERIDEN HYDROCHLORIDE
     Indication: SCHIZOPHRENIA
     Dosage: 9 MG, DAILY
     Route: 048
  5. DIAZEPAM. [Concomitant]
     Active Substance: DIAZEPAM
     Indication: SCHIZOPHRENIA
     Dosage: 6 MG, DAILY
     Route: 048
  6. CYCLOPHOSPHAMIDE. [Concomitant]
     Active Substance: CYCLOPHOSPHAMIDE
     Indication: LUNG CANCER METASTATIC
     Dosage: 150 MG, DAILY
     Route: 041
     Dates: start: 199603
  7. FLUOROURACIL. [Concomitant]
     Active Substance: FLUOROURACIL
     Indication: LUNG CANCER METASTATIC
     Dosage: 500 MG, DAILY
     Route: 041
     Dates: start: 199603
  8. PROPERICIAZINE [Concomitant]
     Active Substance: PERICIAZINE
     Indication: SCHIZOPHRENIA
     Dosage: 90 MG, DAILY
     Route: 048
  9. PROMETHAZINE HYDROCHLORIDE. [Concomitant]
     Active Substance: PROMETHAZINE HYDROCHLORIDE
     Indication: SCHIZOPHRENIA
     Dosage: 20 MG, DAILY
     Route: 048
  10. MEDROXYPROGESTERONE ACETATE. [Suspect]
     Active Substance: MEDROXYPROGESTERONE ACETATE
     Dosage: 1200 MG, DAILY
     Route: 048
     Dates: start: 199603
  11. CARBAMAZEPINE. [Concomitant]
     Active Substance: CARBAMAZEPINE
     Indication: SCHIZOPHRENIA
     Dosage: 600 MG, DAILY
     Route: 048
  12. HALOPERIDOL. [Concomitant]
     Active Substance: HALOPERIDOL
     Indication: SCHIZOPHRENIA
     Dosage: 9 MG, DAILY
     Route: 048

REACTIONS (2)
  - Overdose [Unknown]
  - Superior sagittal sinus thrombosis [Fatal]

NARRATIVE: CASE EVENT DATE: 199603
